FAERS Safety Report 8801104 (Version 2)
Quarter: 2012Q4

REPORT INFORMATION
  Report Type: 
  Country: FR (occurrence: FR)
  Receive Date: 20120921
  Receipt Date: 20121010
  Transmission Date: 20130627
  Serious: Yes (Hospitalization)
  Sender: FDA-Public Use
  Company Number: FR-GLAXOSMITHKLINE-B0829734A

PATIENT
  Age: 72 None
  Sex: Female

DRUGS (12)
  1. DEROXAT [Suspect]
     Indication: PRODUCT USED FOR UNKNOWN INDICATION
     Dosage: 30MG per day
     Route: 048
  2. XANAX [Concomitant]
     Route: 065
  3. IMOVANE [Concomitant]
     Route: 065
  4. COVERSYL [Concomitant]
     Route: 065
  5. LIPANTHYL [Concomitant]
     Route: 065
  6. CACIT VITAMINE D3 [Concomitant]
     Route: 065
  7. ACTONEL [Concomitant]
     Route: 065
  8. INIPOMP [Concomitant]
     Route: 065
  9. DAFALGAN [Concomitant]
     Route: 065
  10. IXPRIM [Concomitant]
     Route: 065
  11. TROSPIUM CHLORIDE [Concomitant]
     Route: 065
  12. SOLUMEDROL [Concomitant]
     Indication: RHEUMATOID ARTHRITIS
     Route: 065

REACTIONS (2)
  - Spontaneous haematoma [Recovered/Resolved]
  - Haemoglobin decreased [Recovered/Resolved]
